FAERS Safety Report 6100561-0 (Version None)
Quarter: 2009Q1

REPORT INFORMATION
  Report Type: 
  Country: None (occurrence: None)
  Receive Date: 20090303
  Receipt Date: 20090218
  Transmission Date: 20090719
  Serious: Yes (Hospitalization, Other)
  Sender: FDA-Public Use
  Company Number: CZ-PFIZER INC-2009169379

PATIENT
  Age: 80 Year
  Sex: Female

DRUGS (4)
  1. ZOLOFT [Suspect]
     Route: 048
  2. AMLODIPINE [Suspect]
     Route: 048
  3. OXAZEPAM [Concomitant]
     Route: 048
  4. TRALGIT [Concomitant]
     Route: 048

REACTIONS (5)
  - BLOOD PRESSURE INCREASED [None]
  - BLOOD PROLACTIN ABNORMAL [None]
  - HEADACHE [None]
  - HEPATIC CYST [None]
  - RENAL COLIC [None]
